FAERS Safety Report 5097725-4 (Version None)
Quarter: 2006Q3

REPORT INFORMATION
  Report Type: 
  Country: None (occurrence: None)
  Receive Date: 20060901
  Receipt Date: 20060824
  Transmission Date: 20061208
  Serious: Yes (Other)
  Sender: FDA-Public Use
  Company Number: 2006-147068-NL

PATIENT
  Age: 91 Year
  Sex: Female

DRUGS (1)
  1. REMERON /SCH/ [Suspect]
     Indication: DECREASED APPETITE
     Dates: start: 20060801, end: 20060801

REACTIONS (10)
  - AGITATION [None]
  - ANXIETY [None]
  - CONFUSIONAL STATE [None]
  - CONTUSION [None]
  - FALL [None]
  - MANIA [None]
  - NIGHTMARE [None]
  - POSTURE ABNORMAL [None]
  - RESTLESSNESS [None]
  - THINKING ABNORMAL [None]
